FAERS Safety Report 8919147 (Version 2)
Quarter: 2012Q4

REPORT INFORMATION
  Report Type: 
  Country: US (occurrence: US)
  Receive Date: 20121121
  Receipt Date: 20121205
  Transmission Date: 20130627
  Serious: Yes (Other)
  Sender: FDA-Public Use
  Company Number: US-JNJFOC-20121108098

PATIENT
  Age: 15 Year
  Sex: Female

DRUGS (4)
  1. REMICADE [Suspect]
     Indication: CROHN^S DISEASE
     Route: 042
  2. ZYRTEC [Suspect]
     Route: 065
  3. ZYRTEC [Suspect]
     Indication: PRODUCT USED FOR UNKNOWN INDICATION
     Route: 065
  4. BIRTH CONTROL PILLS [Concomitant]
     Route: 065

REACTIONS (1)
  - Epistaxis [Recovered/Resolved]
